FAERS Safety Report 4652865-6 (Version None)
Quarter: 2005Q2

REPORT INFORMATION
  Report Type: 
  Country: None (occurrence: None)
  Receive Date: 20050502
  Receipt Date: 20050415
  Transmission Date: 20051028
  Serious: No
  Sender: FDA-Public Use
  Company Number: 10900

PATIENT
  Age: 61 Year
  Sex: Female

DRUGS (8)
  1. CARBOPLATIN [Suspect]
     Indication: SMALL CELL LUNG CANCER STAGE UNSPECIFIED
     Dosage: 660 MG IV
     Route: 042
     Dates: start: 20050221
  2. ETOPOSIDE [Suspect]
     Indication: SMALL CELL LUNG CANCER STAGE UNSPECIFIED
     Dosage: 190 MG IV
     Route: 042
     Dates: start: 20050221, end: 20050221
  3. METFORMIN [Concomitant]
  4. SIMVASTATIN [Concomitant]
  5. ENALAPRIL MALEATE [Concomitant]
  6. BENDROFLUAZIDE [Concomitant]
  7. ACETYL SALICYLIC ACID USP BAT [Concomitant]
  8. GLICLAZIDE [Concomitant]

REACTIONS (4)
  - BODY TEMPERATURE DECREASED [None]
  - C-REACTIVE PROTEIN INCREASED [None]
  - PANCYTOPENIA [None]
  - SEPSIS [None]
